FAERS Safety Report 8922919 (Version 2)
Quarter: 2012Q4

REPORT INFORMATION
  Report Type: 
  Country: GB (occurrence: GB)
  Receive Date: 20121123
  Receipt Date: 20121207
  Transmission Date: 20130627
  Serious: Yes (Other)
  Sender: FDA-Public Use
  Company Number: GB-MERCK-1211GBR009499

PATIENT
  Sex: Female

DRUGS (1)
  1. MIRTAZAPINE [Suspect]
     Indication: DEPRESSION
     Dosage: UNK

REACTIONS (11)
  - Aggression [Unknown]
  - Agitation [Unknown]
  - Diarrhoea [Unknown]
  - Coordination abnormal [Unknown]
  - Eating disorder [Unknown]
  - Fall [Unknown]
  - Malaise [Unknown]
  - Restless legs syndrome [Unknown]
  - Tearfulness [Unknown]
  - Gait disturbance [Unknown]
  - Depression [Unknown]
